FAERS Safety Report 23310602 (Version 2)
Quarter: 2024Q2

REPORT INFORMATION
  Report Type: Report from Study
  Country: EG (occurrence: EG)
  Receive Date: 20231218
  Receipt Date: 20240502
  Transmission Date: 20240716
  Serious: Yes (Hospitalization, Other)
  Sender: FDA-Public Use
  Company Number: EG-JNJFOC-20231184070

PATIENT
  Age: 22 Year
  Sex: Female
  Weight: 80 kg

DRUGS (3)
  1. REMICADE [Suspect]
     Active Substance: INFLIXIMAB
     Indication: Colitis ulcerative
     Dosage: 2 VIALS ON INFUSION
     Route: 041
     Dates: start: 202304, end: 20231017
  2. PENTASA [Concomitant]
     Active Substance: MESALAMINE
     Dosage: 3 TABLETS IN THE MORNING AND 3 TABLETS AT NIGHT (STARTED BEFORE TAKING REMICADE: 7 YEARS AGO AND STI
     Route: 048
  3. AZATHIOPRINE [Concomitant]
     Active Substance: AZATHIOPRINE
     Dosage: 1 TABLET IN THE MORNING AND 1 TABLET IN THE NIGHT (STARTED BEFORE TAKING REMICADE: 7 YEARS AGO AND S
     Route: 048

REACTIONS (5)
  - Colitis ulcerative [Not Recovered/Not Resolved]
  - Enterocolitis viral [Unknown]
  - Anaemia [Unknown]
  - Drug ineffective [Unknown]
  - Off label use [Unknown]

NARRATIVE: CASE EVENT DATE: 20231027
